FAERS Safety Report 12087820 (Version 1)
Quarter: 2016Q1

REPORT INFORMATION
  Report Type: Spontaneous
  Country: US (occurrence: US)
  Receive Date: 20160217
  Receipt Date: 20160217
  Transmission Date: 20160526
  Serious: No
  Sender: FDA-Public Use
  Company Number: US-ALLERGAN-1519833US

PATIENT
  Sex: Female
  Weight: 69.84 kg

DRUGS (2)
  1. AMBIEN [Concomitant]
     Active Substance: ZOLPIDEM TARTRATE
     Indication: PRODUCT USED FOR UNKNOWN INDICATION
  2. RESTASIS [Suspect]
     Active Substance: CYCLOSPORINE
     Indication: DRY EYE
     Dosage: UNK UNK, UNKNOWN
     Route: 047

REACTIONS (6)
  - Eye pain [Not Recovered/Not Resolved]
  - Vision blurred [Unknown]
  - Ocular hyperaemia [Not Recovered/Not Resolved]
  - Eye irritation [Not Recovered/Not Resolved]
  - Inappropriate schedule of drug administration [Unknown]
  - Trigeminal neuralgia [Not Recovered/Not Resolved]
